FAERS Safety Report 9672244 (Version 1)
Quarter: 2013Q4

REPORT INFORMATION
  Report Type: Spontaneous
  Country: US (occurrence: US)
  Receive Date: 20131106
  Receipt Date: 20131106
  Transmission Date: 20140711
  Serious: Yes (Hospitalization)
  Sender: FDA-Public Use
  Company Number: US-BAXTER-2013BAX042941

PATIENT
  Age: 56 Year
  Sex: Male

DRUGS (8)
  1. DIANEAL LOW CALCIUM [Suspect]
     Indication: RENAL FAILURE CHRONIC
     Route: 033
     Dates: start: 201209
  2. DIANEAL LOW CALCIUM [Suspect]
     Route: 033
     Dates: start: 2012
  3. DIANEAL LOW CALCIUM [Suspect]
     Indication: RENAL FAILURE CHRONIC
     Route: 033
     Dates: start: 201309
  4. DIANEAL LOW CALCIUM [Suspect]
     Route: 033
     Dates: start: 2013
  5. DIANEAL LOW CALCIUM (ULTRABAG) [Suspect]
     Indication: RENAL FAILURE CHRONIC
     Route: 033
     Dates: start: 201310, end: 201310
  6. DIANEAL LOW CALCIUM (ULTRABAG) [Suspect]
     Indication: CARDIAC FAILURE CONGESTIVE
  7. DIANEAL LOW CALCIUM (ULTRABAG) [Suspect]
     Indication: RENAL FAILURE CHRONIC
     Route: 033
     Dates: start: 201310, end: 201310
  8. DIANEAL LOW CALCIUM (ULTRABAG) [Suspect]
     Indication: CARDIAC FAILURE CONGESTIVE

REACTIONS (2)
  - Myocardial infarction [Recovering/Resolving]
  - Cardiac failure congestive [Recovered/Resolved]
